FAERS Safety Report 7422063-1 (Version None)
Quarter: 2011Q2

REPORT INFORMATION
  Report Type: 
  Country: None (occurrence: None)
  Receive Date: 20110418
  Receipt Date: 20110412
  Transmission Date: 20111010
  Serious: Yes (Hospitalization)
  Sender: FDA-Public Use
  Company Number: JP-B.I. PHARMACEUTICALS,INC./RIDGEFIELD-2011-BP-10575NB

PATIENT
  Sex: Female
  Weight: 34 kg

DRUGS (8)
  1. PRAZAXA [Suspect]
     Indication: ATRIAL FIBRILLATION
     Dosage: 220 MG
     Route: 048
     Dates: start: 20110404, end: 20110407
  2. ALLOZYM [Concomitant]
     Indication: HYPERURICAEMIA
     Dosage: 200 MG
     Route: 048
     Dates: start: 20081213
  3. FUROSEMIDE [Concomitant]
     Indication: CARDIAC FAILURE
     Dosage: 20 MG
     Route: 048
     Dates: start: 20080328
  4. BLOPRESS [Concomitant]
     Indication: HYPERTENSION
  5. BLOPRESS [Concomitant]
     Indication: CARDIAC FAILURE
     Dosage: 8 MG
     Route: 048
     Dates: start: 20080101
  6. DIGOXIN [Concomitant]
     Indication: HEART RATE
     Dosage: 1DF
     Route: 048
     Dates: start: 20080328
  7. CONIEL [Concomitant]
     Indication: BLOOD PRESSURE
     Dosage: 4 MG
     Route: 048
     Dates: start: 20090709
  8. STOMARCON [Concomitant]
     Indication: PROPHYLAXIS AGAINST GASTROINTESTINAL ULCER
     Dosage: 20 MG
     Route: 048
     Dates: start: 20090903

REACTIONS (3)
  - MALAISE [None]
  - ANAEMIA [None]
  - EPISTAXIS [None]
